FAERS Safety Report 6762336-9 (Version None)
Quarter: 2010Q2

REPORT INFORMATION
  Report Type: 
  Country: None (occurrence: None)
  Receive Date: 20100609
  Receipt Date: 20100602
  Transmission Date: 20101027
  Serious: Yes (Hospitalization)
  Sender: FDA-Public Use
  Company Number: PHHO2010AU08625

PATIENT
  Sex: Male
  Weight: 75 kg

DRUGS (6)
  1. CO-DIOVAN T32564+ [Suspect]
     Indication: HYPERTENSION
     Dosage: UNK
     Dates: start: 20100527
  2. VALIUM [Concomitant]
  3. DITROPAN [Concomitant]
  4. LEVOTHYROXINE SODIUM [Concomitant]
  5. FENAC [Concomitant]
  6. TEMAZE [Concomitant]

REACTIONS (1)
  - TRANSIENT ISCHAEMIC ATTACK [None]
